FAERS Safety Report 19761310 (Version 1)
Quarter: 2021Q3

REPORT INFORMATION
  Report Type: Spontaneous
  Country: US (occurrence: US)
  Receive Date: 20210830
  Receipt Date: 20210830
  Transmission Date: 20211014
  Serious: No
  Sender: FDA-Public Use
  Company Number: US-MACLEODS PHARMACEUTICALS US LTD-MAC2021032458

PATIENT

DRUGS (1)
  1. RIZATRIPTAN 10 MG [Suspect]
     Active Substance: RIZATRIPTAN
     Indication: MIGRAINE
     Dosage: 10 MILLIGRAM (3 TIMES A WEEK)
     Route: 065

REACTIONS (1)
  - Drug ineffective [Unknown]
